FAERS Safety Report 11088742 (Version 1)
Quarter: 2015Q2

REPORT INFORMATION
  Report Type: Report from Study
  Country: US (occurrence: US)
  Receive Date: 20150504
  Receipt Date: 20150504
  Transmission Date: 20150821
  Serious: Yes (Hospitalization)
  Sender: FDA-Public Use
  Company Number: US-009507513-1504USA023652

PATIENT
  Age: 49 Year
  Sex: Male
  Weight: 53.61 kg

DRUGS (2)
  1. CISPLATIN. [Suspect]
     Active Substance: CISPLATIN
     Indication: SQUAMOUS CELL CARCINOMA OF HEAD AND NECK
     Dosage: 100 MG/M2, UNK
     Dates: start: 20150330, end: 20150427
  2. VORINOSTAT [Suspect]
     Active Substance: VORINOSTAT
     Indication: SQUAMOUS CELL CARCINOMA OF HEAD AND NECK
     Dosage: 400 MG, M,W,F
     Route: 048
     Dates: start: 20150323, end: 20150427

REACTIONS (6)
  - Dehydration [Unknown]
  - Nutritional condition abnormal [Unknown]
  - Vomiting [Not Recovered/Not Resolved]
  - Pain [Unknown]
  - Nausea [Not Recovered/Not Resolved]
  - Failure to thrive [Unknown]

NARRATIVE: CASE EVENT DATE: 20150427
